FAERS Safety Report 5387152-4 (Version None)
Quarter: 2007Q3

REPORT INFORMATION
  Report Type: 
  Country: None (occurrence: None)
  Receive Date: 20070711
  Receipt Date: 20070629
  Transmission Date: 20080115
  Serious: Yes (Other)
  Sender: FDA-Public Use
  Company Number: 2007US001564

PATIENT
  Age: 65 Year
  Sex: Male

DRUGS (1)
  1. PROTOPIC [Suspect]
     Indication: SEBORRHOEIC DERMATITIS
     Dosage: TOPICAL
     Route: 061

REACTIONS (1)
  - SARCOMA [None]
